FAERS Safety Report 6034729-9 (Version None)
Quarter: 2009Q1

REPORT INFORMATION
  Report Type: 
  Country: None (occurrence: None)
  Receive Date: 20090109
  Receipt Date: 20090109
  Transmission Date: 20090719
  Serious: No
  Sender: FDA-Public Use
  Company Number: None

PATIENT
  Sex: Female

DRUGS (6)
  1. ZOMETA [Suspect]
     Indication: MULTIPLE MYELOMA
     Dosage: 4 MG  MONTHLY IV
     Route: 042
     Dates: start: 20050701, end: 20060601
  2. ZOMETA [Suspect]
     Indication: MULTIPLE MYELOMA
     Dosage: 4 MG MONTHLY IV
     Route: 042
     Dates: start: 20051101, end: 20060101
  3. THALIDOMIDE [Concomitant]
  4. SYNTHROID [Concomitant]
  5. LORAZEPAM [Concomitant]
  6. PROTONIX [Concomitant]

REACTIONS (1)
  - JAW DISORDER [None]
